FAERS Safety Report 19621069 (Version 2)
Quarter: 2021Q4

REPORT INFORMATION
  Report Type: Spontaneous
  Country: JP (occurrence: JP)
  Receive Date: 20210728
  Receipt Date: 20211025
  Transmission Date: 20220304
  Serious: Yes (Other)
  Sender: FDA-Public Use
  Company Number: JP-VIIV HEALTHCARE ULC-JP2021JPN159533

PATIENT
  Age: 5 Decade

DRUGS (5)
  1. MARAVIROC [Suspect]
     Active Substance: MARAVIROC
     Dosage: UNK
  2. PREZCOBIX [Concomitant]
     Active Substance: COBICISTAT\DARUNAVIR ETHANOLATE
     Indication: HIV infection
     Dosage: UNK
  3. TRUVADA [Concomitant]
     Active Substance: EMTRICITABINE\TENOFOVIR DISOPROXIL FUMARATE
     Indication: HIV infection
     Dosage: UNK
  4. PREZISTA [Concomitant]
     Active Substance: DARUNAVIR ETHANOLATE
     Indication: HIV infection
     Dosage: UNK
  5. NORVIR [Concomitant]
     Active Substance: RITONAVIR
     Indication: HIV infection
     Dosage: UNK

REACTIONS (1)
  - Acute hepatitis B [Unknown]
